FAERS Safety Report 6545054-1 (Version None)
Quarter: 2010Q1

REPORT INFORMATION
  Report Type: 
  Country: None (occurrence: None)
  Receive Date: 20100121
  Receipt Date: 20100118
  Transmission Date: 20100710
  Serious: Yes (Other)
  Sender: FDA-Public Use
  Company Number: B0627486A

PATIENT
  Sex: Male

DRUGS (1)
  1. VENTOLIN [Suspect]
     Dosage: 100MCG SINGLE DOSE
     Route: 055
     Dates: start: 20091231, end: 20091231

REACTIONS (1)
  - CYANOSIS [None]
